FAERS Safety Report 4865694-5 (Version None)
Quarter: 2005Q4

REPORT INFORMATION
  Report Type: 
  Country: None (occurrence: None)
  Receive Date: 20051220
  Receipt Date: 20051213
  Transmission Date: 20060501
  Serious: Yes (Hospitalization)
  Sender: FDA-Public Use
  Company Number: 163-20785-05080314

PATIENT
  Age: 51 Year
  Sex: Male

DRUGS (4)
  1. THALOMID [Suspect]
     Indication: MULTIPLE MYELOMA
     Dosage: 150 MG, DAILY, ORAL
     Route: 048
     Dates: start: 20050713, end: 20050801
  2. THALOMID [Suspect]
  3. COUMADIN [Suspect]
  4. DECADRON [Suspect]

REACTIONS (4)
  - COAGULOPATHY [None]
  - DISEASE PROGRESSION [None]
  - INTERNATIONAL NORMALISED RATIO INCREASED [None]
  - PNEUMONIA [None]
